FAERS Safety Report 22604605 (Version 2)
Quarter: 2023Q2

REPORT INFORMATION
  Report Type: Report from Study
  Country: AE (occurrence: None)
  Receive Date: 20230615
  Receipt Date: 20230618
  Transmission Date: 20230721
  Serious: No
  Sender: FDA-Public Use
  Company Number: 2023A134854

PATIENT
  Age: 54 Year
  Sex: Female
  Weight: 122 kg

DRUGS (1)
  1. CILGAVIMAB\TIXAGEVIMAB [Suspect]
     Active Substance: CILGAVIMAB\TIXAGEVIMAB
     Indication: COVID-19 treatment
     Dosage: 600 MG ADMINISTERED AS TWO SEPARATE IM INJECTIONS 300 MG AZD8895 AND 300 MG AZD1061, ONCE/SINGLE ...
     Route: 030
     Dates: start: 20230123

REACTIONS (1)
  - Pyrexia [Recovered/Resolved]

NARRATIVE: CASE EVENT DATE: 20230409
